FAERS Safety Report 8397272-8 (Version None)
Quarter: 2012Q2

REPORT INFORMATION
  Report Type: 
  Country: None (occurrence: None)
  Receive Date: 20120531
  Receipt Date: 20120521
  Transmission Date: 20120825
  Serious: Yes (Life-Threatening, Hospitalization)
  Sender: FDA-Public Use
  Company Number: US-BRISTOL-MYERS SQUIBB COMPANY-16612541

PATIENT
  Age: 59 Year
  Sex: Male

DRUGS (1)
  1. CEFEPIME [Suspect]
     Indication: LOCALISED INFECTION

REACTIONS (4)
  - ENCEPHALOPATHY [None]
  - DRUG RASH WITH EOSINOPHILIA AND SYSTEMIC SYMPTOMS [None]
  - TUBULOINTERSTITIAL NEPHRITIS [None]
  - RENAL FAILURE [None]
